FAERS Safety Report 8204633-6 (Version None)
Quarter: 2012Q1

REPORT INFORMATION
  Report Type: 
  Country: None (occurrence: None)
  Receive Date: 20120313
  Receipt Date: 20120301
  Transmission Date: 20120608
  Serious: Yes (Hospitalization, Other)
  Sender: FDA-Public Use
  Company Number: CH-ELI_LILLY_AND_COMPANY-CH201203000137

PATIENT
  Sex: Male
  Weight: 70 kg

DRUGS (2)
  1. EFFIENT [Suspect]
     Indication: ACUTE MYOCARDIAL INFARCTION
     Dosage: 60 MG, SINGLE
     Dates: start: 20110711
  2. EFFIENT [Suspect]
     Dosage: UNK, UNKNOWN

REACTIONS (2)
  - MYOCARDIAL ISCHAEMIA [None]
  - IN-STENT CORONARY ARTERY RESTENOSIS [None]
